FAERS Safety Report 4957396-1 (Version None)
Quarter: 2006Q1

REPORT INFORMATION
  Report Type: 
  Country: None (occurrence: None)
  Receive Date: 20060327
  Receipt Date: 20060315
  Transmission Date: 20060701
  Serious: Yes (Other)
  Sender: FDA-Public Use
  Company Number: 2006036461

PATIENT
  Age: 53 Year
  Sex: Male
  Weight: 140.6151 kg

DRUGS (7)
  1. BENADRYL [Suspect]
     Indication: PRURITUS
     Dosage: 13-15 TABLETS AT ONCE, ORAL
     Route: 048
     Dates: start: 20050901
  2. DRUG, UNSPECIFIED [Concomitant]
  3. ANTI-DIABETICS [Concomitant]
  4. MORPHINE [Concomitant]
  5. OXYCODONE HCL [Concomitant]
  6. DRUG, UNSPECIFIED [Concomitant]
  7. DRUG, UNSPECIFIED [Concomitant]

REACTIONS (4)
  - IRRITABILITY [None]
  - OSTEOMYELITIS [None]
  - PERSONALITY CHANGE [None]
  - SOMNOLENCE [None]
